FAERS Safety Report 18055075 (Version 1)
Quarter: 2020Q3

REPORT INFORMATION
  Report Type: Spontaneous
  Country: AT (occurrence: AT)
  Receive Date: 20200722
  Receipt Date: 20200722
  Transmission Date: 20201103
  Serious: Yes (Hospitalization)
  Sender: FDA-Public Use
  Company Number: AT-ALSI-202000243

PATIENT
  Age: 90 Year
  Sex: Male

DRUGS (1)
  1. OXYGEN. [Suspect]
     Active Substance: OXYGEN
     Route: 055
     Dates: start: 20151102

REACTIONS (2)
  - Device catching fire [Recovered/Resolved]
  - Thermal burn [Not Recovered/Not Resolved]
